FAERS Safety Report 6287754-7 (Version None)
Quarter: 2009Q3

REPORT INFORMATION
  Report Type: 
  Country: None (occurrence: None)
  Receive Date: 20090727
  Receipt Date: 20090727
  Transmission Date: 20100115
  Serious: Yes (Other)
  Sender: FDA-Public Use
  Company Number: None

PATIENT
  Age: 47 Year
  Sex: Female
  Weight: 74.8435 kg

DRUGS (2)
  1. ASPIRIN 300MG, CAFFEINE 40MG, BUTALBITAL 50MG CAP [Suspect]
     Indication: FIBROMYALGIA
     Dosage: 1 CAPSULE EVERY 6 HOURS PO
     Route: 048
     Dates: start: 20090615, end: 20090723
  2. ASPIRIN 300MG, CAFFEINE 40MG, BUTALBITAL 50MG CAP [Suspect]
     Indication: MIGRAINE
     Dosage: 1 CAPSULE EVERY 6 HOURS PO
     Route: 048
     Dates: start: 20090615, end: 20090723

REACTIONS (2)
  - DRUG INEFFECTIVE [None]
  - PRODUCT SUBSTITUTION ISSUE [None]
